FAERS Safety Report 9503827 (Version 2)
Quarter: 2013Q4

REPORT INFORMATION
  Report Type: Spontaneous
  Country: JP (occurrence: JP)
  Receive Date: 20130906
  Receipt Date: 20131009
  Transmission Date: 20140711
  Serious: Yes (Hospitalization)
  Sender: FDA-Public Use
  Company Number: JP-JNJFOC-20130902322

PATIENT
  Age: 75 Year
  Sex: Male
  Weight: 63.95 kg

DRUGS (6)
  1. XARELTO [Suspect]
     Indication: CEREBROVASCULAR ACCIDENT PROPHYLAXIS
     Route: 048
     Dates: start: 20130206, end: 20130827
  2. XARELTO [Suspect]
     Indication: ATRIAL FIBRILLATION
     Route: 048
     Dates: start: 20130206, end: 20130827
  3. ALOSITOL [Concomitant]
     Indication: HYPERURICAEMIA
     Route: 048
     Dates: start: 20090714
  4. LUPRAC [Concomitant]
     Indication: CARDIAC FAILURE
     Route: 048
     Dates: start: 20090824
  5. RENIVACE [Concomitant]
     Indication: HYPERTENSION
     Route: 048
     Dates: start: 20120216
  6. MAINTATE [Concomitant]
     Indication: ARRHYTHMIA PROPHYLAXIS
     Route: 048
     Dates: start: 20130206

REACTIONS (3)
  - Rib fracture [Unknown]
  - Fall [Unknown]
  - Haemothorax [Recovered/Resolved]
